FAERS Safety Report 9464707 (Version 1)
Quarter: 2013Q3

REPORT INFORMATION
  Report Type: Spontaneous
  Country: US (occurrence: US)
  Receive Date: 20130819
  Receipt Date: 20130819
  Transmission Date: 20140515
  Serious: No
  Sender: FDA-Public Use
  Company Number: US-PFIZER INC-2013237196

PATIENT
  Age: 67 Year
  Sex: Female

DRUGS (11)
  1. CELEBREX [Suspect]
     Dosage: 200 MG, 1X/DAY
  2. GLUCOTROL [Concomitant]
     Dosage: 20 MG, 2X/DAY
  3. ALPRAZOLAM [Concomitant]
     Dosage: UNK
  4. ATENOLOL/CHLORTHALIDONE [Concomitant]
     Dosage: UNK
  5. MECLIZINE [Concomitant]
     Dosage: UNK
  6. DIOVAN [Concomitant]
     Dosage: UNK
  7. PAXIL [Concomitant]
     Dosage: UNK
  8. ACTOS [Concomitant]
     Dosage: UNK
  9. ZINC [Concomitant]
     Dosage: UNK
  10. DHEA [Concomitant]
     Dosage: UNK
  11. SELENIUM [Concomitant]
     Dosage: UNK

REACTIONS (3)
  - Activities of daily living impaired [Unknown]
  - Finger deformity [Unknown]
  - Sensory loss [Unknown]
